FAERS Safety Report 13909814 (Version 1)
Quarter: 2017Q3

REPORT INFORMATION
  Report Type: Report from Study
  Country: DE (occurrence: DE)
  Receive Date: 20170828
  Receipt Date: 20170828
  Transmission Date: 20171127
  Serious: Yes (Death)
  Sender: FDA-Public Use
  Company Number: DE-CIPLA LTD.-2017DE14907

PATIENT

DRUGS (3)
  1. VINCRISTINE [Suspect]
     Active Substance: VINCRISTINE
     Indication: GLIOMA
     Dosage: UNK, TEN WEEKLY DOSES
     Route: 040
  2. CARBOPLATIN. [Suspect]
     Active Substance: CARBOPLATIN
     Indication: GLIOMA
     Dosage: UNK, FOUR SINGLE DOSES
     Route: 042
  3. ETOPOSIDE. [Suspect]
     Active Substance: ETOPOSIDE
     Indication: GLIOMA
     Dosage: 100 MG/M2, 1 H ON DAY 1 TO 3 IN WEEKS 1, 4, 7 AND 10
     Route: 042

REACTIONS (1)
  - Death [Fatal]
